FAERS Safety Report 11645149 (Version 2)
Quarter: 2018Q1

REPORT INFORMATION
  Report Type: Report from Study
  Country: US (occurrence: US)
  Receive Date: 20151020
  Receipt Date: 20180131
  Transmission Date: 20180508
  Serious: Yes (Death, Hospitalization, Other)
  Sender: FDA-Public Use
  Company Number: US-UCBSA-2015033223

PATIENT
  Age: 0 Year
  Sex: Female
  Weight: .7 kg

DRUGS (1)
  1. CERTOLIZUMAB PEGOL [Suspect]
     Active Substance: CERTOLIZUMAB PEGOL
     Indication: RHEUMATOID ARTHRITIS
     Dosage: 1 SHOT, EV 2 WEEKS(QOW)
     Route: 064
     Dates: start: 2014, end: 20150102

REACTIONS (4)
  - Cardiac disorder [Fatal]
  - Infection [Fatal]
  - Foetal exposure during pregnancy [Unknown]
  - Premature baby [Unknown]

NARRATIVE: CASE EVENT DATE: 2014
